FAERS Safety Report 16959142 (Version 25)
Quarter: 2021Q2

REPORT INFORMATION
  Report Type: Report from Study
  Country: US (occurrence: US)
  Receive Date: 20191024
  Receipt Date: 20210519
  Transmission Date: 20210716
  Serious: Yes (Hospitalization, Other)
  Sender: FDA-Public Use
  Company Number: NVSC2019US015327

PATIENT
  Age: 36 Year
  Sex: Female
  Weight: 109.75 kg

DRUGS (15)
  1. TREPROSTINIL. [Suspect]
     Active Substance: TREPROSTINIL
     Dosage: 178 NG/KG/MIN, CONT
     Route: 042
  2. TREPROSTINIL. [Suspect]
     Active Substance: TREPROSTINIL
     Dosage: 178 NG/KG/MIN,CONT (5MGLML)
     Route: 042
  3. TREPROSTINIL. [Suspect]
     Active Substance: TREPROSTINIL
     Dosage: UNK, CONT (160 NG/KG/MIN) (STRENGTH 1MG/ML)
     Route: 042
     Dates: start: 20200219
  4. TREPROSTINIL. [Suspect]
     Active Substance: TREPROSTINIL
     Dosage: 178 NG/KG/MIN, CONT
     Route: 042
     Dates: start: 20200219
  5. TREPROSTINIL. [Suspect]
     Active Substance: TREPROSTINIL
     Dosage: 178 NG/KG/MIN, CONT (CONCENTRATION 10 MG/ML)
     Route: 042
  6. TREPROSTINIL. [Suspect]
     Active Substance: TREPROSTINIL
     Dosage: 178 NG/KG/MIN, CONT
     Route: 042
  7. AMBRISENTAN [Concomitant]
     Active Substance: AMBRISENTAN
     Indication: PRODUCT USED FOR UNKNOWN INDICATION
     Dosage: UNK
     Route: 065
  8. TREPROSTINIL. [Suspect]
     Active Substance: TREPROSTINIL
     Dosage: 178 NG/KG/MIN, CONT
     Route: 042
  9. PREDNISONE. [Concomitant]
     Active Substance: PREDNISONE
     Indication: PRODUCT USED FOR UNKNOWN INDICATION
     Dosage: UNK
     Route: 065
  10. ELIQUIS [Concomitant]
     Active Substance: APIXABAN
     Indication: PRODUCT USED FOR UNKNOWN INDICATION
     Dosage: UNK
     Route: 065
  11. TADALAFIL. [Concomitant]
     Active Substance: TADALAFIL
     Indication: PRODUCT USED FOR UNKNOWN INDICATION
     Dosage: UNK
     Route: 065
  12. TREPROSTINIL. [Suspect]
     Active Substance: TREPROSTINIL
     Dosage: 160 NG/KG/MIN, CONT
     Route: 042
     Dates: start: 20200219
  13. TREPROSTINIL. [Suspect]
     Active Substance: TREPROSTINIL
     Indication: PULMONARY ARTERIAL HYPERTENSION
     Dosage: 178 NG/KG/MIN, CONT
     Route: 042
     Dates: start: 20190926
  14. TREPROSTINIL. [Suspect]
     Active Substance: TREPROSTINIL
     Dosage: 178 NG/KG/MIN, CONT
     Route: 042
     Dates: start: 20200219
  15. TREPROSTINIL. [Suspect]
     Active Substance: TREPROSTINIL
     Dosage: 160 NG/KG/MIN
     Route: 042
     Dates: start: 20200219

REACTIONS (29)
  - Pulmonary arterial hypertension [Unknown]
  - Gastroenteritis viral [Unknown]
  - Weight decreased [Unknown]
  - Fluid overload [Unknown]
  - Diabetes mellitus [Unknown]
  - Skin disorder [Unknown]
  - Feeling abnormal [Unknown]
  - Headache [Unknown]
  - Nasopharyngitis [Not Recovered/Not Resolved]
  - Diarrhoea [Unknown]
  - Nausea [Unknown]
  - Cardiac failure congestive [Unknown]
  - Ear infection [Unknown]
  - Skin irritation [Unknown]
  - Pneumonia [Unknown]
  - Dyspnoea [Unknown]
  - Flushing [Unknown]
  - Renal disorder [Unknown]
  - Weight increased [Unknown]
  - Sinusitis [Unknown]
  - Asthma [Unknown]
  - Oxygen saturation decreased [Unknown]
  - Dehydration [Unknown]
  - Rash pruritic [Unknown]
  - Respiratory tract infection [Unknown]
  - Fluid retention [Unknown]
  - Illness [Unknown]
  - Conjunctivitis [Unknown]
  - Infusion site erythema [Unknown]

NARRATIVE: CASE EVENT DATE: 201910
